FAERS Safety Report 10090570 (Version 1)
Quarter: 2014Q2

REPORT INFORMATION
  Report Type: Spontaneous
  Country: US (occurrence: US)
  Receive Date: 20140421
  Receipt Date: 20140421
  Transmission Date: 20141212
  Serious: Yes (Hospitalization)
  Sender: FDA-Public Use
  Company Number: US-BAYER-2014-056588

PATIENT
  Age: 49 Year
  Sex: Female

DRUGS (5)
  1. YAZ [Suspect]
  2. ACTONEL [Concomitant]
     Dosage: 1 TAB WEEKLY
  3. FAMVIR [FAMCICLOVIR] [Concomitant]
     Indication: ORAL HERPES
     Dosage: 500 MG, BID
     Route: 048
  4. ELAVIL [Concomitant]
     Dosage: 10 MG, HS
     Route: 048
  5. ALBUTEROL [Concomitant]

REACTIONS (2)
  - Pulmonary embolism [None]
  - Deep vein thrombosis [None]
